FAERS Safety Report 10986492 (Version 1)
Quarter: 2015Q1

REPORT INFORMATION
  Report Type: Spontaneous
  Country: US (occurrence: None)
  Receive Date: 20150320
  Receipt Date: 20150320
  Transmission Date: 20150721
  Serious: Yes (Disabling)
  Sender: FDA-Public Use
  Company Number: 2014000808

PATIENT
  Sex: Male

DRUGS (1)
  1. SULAR [Suspect]
     Active Substance: NISOLDIPINE
     Indication: PRODUCT USED FOR UNKNOWN INDICATION
     Dates: start: 20140520

REACTIONS (1)
  - Peritonitis [None]
